FAERS Safety Report 10958063 (Version 1)
Quarter: 2015Q1

REPORT INFORMATION
  Report Type: Spontaneous
  Country: CN (occurrence: CN)
  Receive Date: 20150326
  Receipt Date: 20150326
  Transmission Date: 20150721
  Serious: Yes (Hospitalization)
  Sender: FDA-Public Use
  Company Number: CN-NOVOPROD-442542

PATIENT
  Age: 20 Year
  Sex: Male

DRUGS (7)
  1. NOVOLIN R [Concomitant]
     Active Substance: INSULIN HUMAN
     Dosage: 10IU IN THE MORNING, 8IU IN THE NOON AND 8IU IN THE NIGHT
     Route: 058
     Dates: start: 20140623, end: 20140624
  2. NOVOMIX 30 PENFILL [Suspect]
     Active Substance: INSULIN ASPART
     Dosage: 26U IN THE MORNING AND 18U IN THE NIGHT
     Route: 058
     Dates: start: 20140626
  3. NOVOLIN N [Concomitant]
     Active Substance: INSULIN HUMAN
     Indication: TYPE 1 DIABETES MELLITUS
     Dosage: 14 IU, QD, AT 10 PM
     Route: 058
     Dates: start: 20140623, end: 20140624
  4. NOVOMIX 30 PENFILL [Suspect]
     Active Substance: INSULIN ASPART
     Dosage: 24U IN THE MORNING AND 16U IN THE NIGHT
     Route: 058
     Dates: end: 20140620
  5. NOVOMIX 30 PENFILL [Suspect]
     Active Substance: INSULIN ASPART
     Indication: TYPE 1 DIABETES MELLITUS
     Dosage: 20U IN THE MORNING, 10U IN THE NIGHT
     Route: 058
  6. NOVOMIX 30 PENFILL [Suspect]
     Active Substance: INSULIN ASPART
     Dosage: 26U IN THE MORNING AND 20U IN THE NIGHT
     Route: 058
     Dates: start: 20140624, end: 20140626
  7. NOVOLIN R [Concomitant]
     Active Substance: INSULIN HUMAN
     Indication: TYPE 1 DIABETES MELLITUS
     Dosage: 50 IU
     Route: 042
     Dates: start: 20140620

REACTIONS (5)
  - Incorrect dosage administered [Unknown]
  - Hyperkalaemia [Recovering/Resolving]
  - Diabetic ketoacidosis [Recovering/Resolving]
  - Gastroenteritis [Recovering/Resolving]
  - Lung infection [Recovering/Resolving]

NARRATIVE: CASE EVENT DATE: 20140618
